FAERS Safety Report 19187144 (Version 4)
Quarter: 2021Q2

REPORT INFORMATION
  Report Type: Spontaneous
  Country: CN (occurrence: CN)
  Receive Date: 20210427
  Receipt Date: 20210514
  Transmission Date: 20210717
  Serious: Yes (Other)
  Sender: FDA-Public Use
  Company Number: CN-SA-2021SA132984

PATIENT
  Age: 55 Year
  Sex: Female

DRUGS (1)
  1. LANTUS SOLOSTAR [Suspect]
     Active Substance: INSULIN GLARGINE
     Dosage: UNK
     Route: 065
     Dates: start: 201901

REACTIONS (8)
  - Retinopathy [Unknown]
  - Retinal haemorrhage [Unknown]
  - Product quality issue [Unknown]
  - Vision blurred [Unknown]
  - Vitreous opacities [Unknown]
  - Ocular discomfort [Unknown]
  - Treatment noncompliance [Unknown]
  - Haemorrhage [Unknown]

NARRATIVE: CASE EVENT DATE: 20210416
